FAERS Safety Report 8116874-7 (Version None)
Quarter: 2012Q1

REPORT INFORMATION
  Report Type: 
  Country: None (occurrence: None)
  Receive Date: 20120131
  Receipt Date: 20120123
  Transmission Date: 20120608
  Serious: Yes (Other)
  Sender: FDA-Public Use
  Company Number: AUR-APL-2012-00616

PATIENT
  Age: 31 Year
  Sex: Male

DRUGS (1)
  1. GABAPENTIN [Suspect]
     Indication: BACK PAIN
     Dosage: 900 MG (300 MG,3 IN 1 D),ORAL
     Route: 048
     Dates: start: 20111124, end: 20111212

REACTIONS (3)
  - DEPRESSION [None]
  - APATHY [None]
  - DECREASED INTEREST [None]
